FAERS Safety Report 25062062 (Version 3)
Quarter: 2025Q2

REPORT INFORMATION
  Report Type: Spontaneous
  Country: US (occurrence: US)
  Receive Date: 20250311
  Receipt Date: 20250425
  Transmission Date: 20250717
  Serious: Yes (Other)
  Sender: UNICHEM
  Company Number: US-UNICHEM LABORATORIES LIMITED-UNI-2025-US-001417

PATIENT

DRUGS (1)
  1. LAMOTRIGINE [Suspect]
     Active Substance: LAMOTRIGINE
     Indication: Product used for unknown indication
     Route: 065
     Dates: start: 2017

REACTIONS (9)
  - Menstruation delayed [Unknown]
  - Pruritus [Unknown]
  - Dyspnoea [Unknown]
  - Rash [Unknown]
  - Skin exfoliation [Unknown]
  - Hormone level abnormal [Unknown]
  - Product coating issue [Unknown]
  - Product colour issue [Unknown]
  - Product physical issue [Unknown]
